FAERS Safety Report 12330370 (Version 1)
Quarter: 2016Q2

REPORT INFORMATION
  Report Type: Other
  Country: TW (occurrence: TW)
  Receive Date: 20160504
  Receipt Date: 20160504
  Transmission Date: 20160815
  Serious: Yes (Hospitalization, Other)
  Sender: FDA-Public Use
  Company Number: TW-HETERO LABS LTD-1051388

PATIENT
  Age: 17 Year
  Sex: Female

DRUGS (1)
  1. LITHIUM. [Suspect]
     Active Substance: LITHIUM
     Indication: ACUTE PSYCHOSIS
     Route: 065

REACTIONS (1)
  - Serotonin syndrome [Recovered/Resolved]
